FAERS Safety Report 5490532-X (Version None)
Quarter: 2007Q4

REPORT INFORMATION
  Report Type: 
  Country: None (occurrence: None)
  Receive Date: 20071019
  Receipt Date: 20071017
  Transmission Date: 20080405
  Serious: Yes (Death)
  Sender: FDA-Public Use
  Company Number: PHBS2007FI17348

PATIENT

DRUGS (1)
  1. EXJADE [Suspect]
     Route: 065

REACTIONS (1)
  - CONCOMITANT DISEASE PROGRESSION [None]
